FAERS Safety Report 21581724 (Version 4)
Quarter: 2025Q1

REPORT INFORMATION
  Report Type: Report from Study
  Country: EG (occurrence: EG)
  Receive Date: 20221111
  Receipt Date: 20250228
  Transmission Date: 20250409
  Serious: Yes (Other)
  Sender: NOVARTIS
  Company Number: EG-002147023-NVSC2022EG252075

PATIENT
  Age: 25 Year
  Sex: Male

DRUGS (3)
  1. GILENYA [Suspect]
     Active Substance: FINGOLIMOD HYDROCHLORIDE
     Indication: Multiple sclerosis
     Dosage: 1 DOSAGE FORM, QD, (0.5 MG, ONE CAP PER DAY, STOPPED 2 MONTHS AGO)
     Route: 048
     Dates: start: 2022, end: 20220801
  2. Cobal [Concomitant]
     Indication: Vitamin supplementation
     Dosage: 1 DOSAGE FORM, QD (STOPPED 2 MONTHS AGO)
     Route: 048
     Dates: start: 202204
  3. Solupred [Concomitant]
     Indication: Optic neuritis
     Dosage: 0.5 DOSAGE FORM, QD, (STARTED ONE AND HALF MONTH AGO)
     Route: 048

REACTIONS (11)
  - Balance disorder [Recovered/Resolved]
  - Gait disturbance [Recovered/Resolved]
  - Multiple sclerosis relapse [Not Recovered/Not Resolved]
  - Myopia [Not Recovered/Not Resolved]
  - Movement disorder [Not Recovered/Not Resolved]
  - Limb discomfort [Not Recovered/Not Resolved]
  - Gait disturbance [Not Recovered/Not Resolved]
  - Migraine [Unknown]
  - Mobility decreased [Recovering/Resolving]
  - Fatigue [Not Recovered/Not Resolved]
  - Asthenia [Not Recovered/Not Resolved]

NARRATIVE: CASE EVENT DATE: 20220501
